FAERS Safety Report 24209105 (Version 1)
Quarter: 2024Q3

REPORT INFORMATION
  Report Type: Spontaneous
  Country: US (occurrence: US)
  Receive Date: 20240814
  Receipt Date: 20240814
  Transmission Date: 20241017
  Serious: No
  Sender: SANOFI AVENTIS
  Company Number: US-SA-SAC20240808000393

PATIENT
  Age: 51 Year
  Sex: Male
  Weight: 81.6 kg

DRUGS (3)
  1. DUPIXENT [Suspect]
     Active Substance: DUPILUMAB
     Indication: Dermatitis allergic
     Dosage: 300 MG, QOW
     Route: 058
     Dates: start: 20170820
  2. DUPIXENT [Suspect]
     Active Substance: DUPILUMAB
     Indication: Renal transplant
  3. ENVARSUS XR [Concomitant]
     Active Substance: TACROLIMUS

REACTIONS (1)
  - Product use in unapproved indication [Unknown]

NARRATIVE: CASE EVENT DATE: 20170820
